FAERS Safety Report 5193866-1 (Version None)
Quarter: 2006Q4

REPORT INFORMATION
  Report Type: 
  Country: None (occurrence: None)
  Receive Date: 20061228
  Receipt Date: 20061222
  Transmission Date: 20070319
  Serious: Yes (Hospitalization)
  Sender: FDA-Public Use
  Company Number: MT-AVENTIS-200622928GDDC

PATIENT
  Age: 48 Year
  Sex: Female

DRUGS (5)
  1. KETEK [Suspect]
     Indication: LOWER RESPIRATORY TRACT INFECTION
     Dates: start: 20061030, end: 20061101
  2. ATENOLOL [Concomitant]
     Dosage: DOSE: UNK
     Route: 048
  3. ELTROXIN [Concomitant]
     Dosage: DOSE: UNK
     Route: 048
  4. BURINEX [Concomitant]
     Dosage: DOSE: UNK
     Route: 048
  5. BEZALIP [Concomitant]
     Dosage: DOSE: UNK
     Route: 048

REACTIONS (2)
  - CONFUSIONAL STATE [None]
  - DISORIENTATION [None]
